FAERS Safety Report 4708939-4 (Version None)
Quarter: 2005Q3

REPORT INFORMATION
  Report Type: 
  Country: None (occurrence: None)
  Receive Date: 20050707
  Receipt Date: 20050624
  Transmission Date: 20060218
  Serious: Yes (Other)
  Sender: FDA-Public Use
  Company Number: 2005071077

PATIENT
  Age: 48 Year
  Sex: Female
  Weight: 67.1324 kg

DRUGS (5)
  1. BEXTRA [Suspect]
     Indication: ARTHRALGIA
     Dosage: 20 MG (20 MG, 1 IN 1 D), ORAL
     Route: 048
     Dates: start: 20030101, end: 20050503
  2. BENADRYL [Suspect]
     Indication: ILL-DEFINED DISORDER
     Dates: start: 20040101
  3. PROZAC [Concomitant]
  4. SYNTHROID [Concomitant]
  5. AMERGE [Concomitant]

REACTIONS (14)
  - ANGINA PECTORIS [None]
  - CHEST PAIN [None]
  - DRUG INEFFECTIVE [None]
  - HAEMOGLOBIN DECREASED [None]
  - HEART RATE INCREASED [None]
  - INSOMNIA [None]
  - MENOPAUSE [None]
  - NIGHT SWEATS [None]
  - PRURITUS [None]
  - SCRATCH [None]
  - SHOULDER PAIN [None]
  - SKIN BURNING SENSATION [None]
  - SKIN LESION [None]
  - ULCER HAEMORRHAGE [None]
